FAERS Safety Report 11586854 (Version 1)
Quarter: 2015Q4

REPORT INFORMATION
  Report Type: Spontaneous
  Country: US (occurrence: US)
  Receive Date: 20151001
  Receipt Date: 20151001
  Transmission Date: 20160304
  Serious: No
  Sender: FDA-Public Use
  Company Number: US-PFIZER INC-2015326040

PATIENT
  Age: 39 Year
  Sex: Female
  Weight: 88.44 kg

DRUGS (2)
  1. NEURONTIN [Suspect]
     Active Substance: GABAPENTIN
     Dosage: UNK
     Dates: start: 199605
  2. NEURONTIN [Suspect]
     Active Substance: GABAPENTIN
     Dosage: UNK (GRADUALLY ADDED A 100)

REACTIONS (1)
  - Drug ineffective [Unknown]

NARRATIVE: CASE EVENT DATE: 199608
